FAERS Safety Report 10153405 (Version 1)
Quarter: 2014Q2

REPORT INFORMATION
  Report Type: Spontaneous
  Country: US (occurrence: US)
  Receive Date: 20140505
  Receipt Date: 20140505
  Transmission Date: 20141212
  Serious: No
  Sender: FDA-Public Use
  Company Number: US-ASTRAZENECA-2013SE75134

PATIENT
  Age: 66 Year
  Sex: Female
  Weight: 86.2 kg

DRUGS (2)
  1. PRILOSEC [Suspect]
     Indication: GASTROOESOPHAGEAL REFLUX DISEASE
     Route: 048
     Dates: start: 2010, end: 20130928
  2. LEVOTHYROXINE [Concomitant]
     Indication: THYROID DISORDER
     Route: 048
     Dates: start: 201204

REACTIONS (6)
  - Dyspnoea [Unknown]
  - Chest pain [Unknown]
  - Throat irritation [Unknown]
  - Throat tightness [Unknown]
  - Dyspepsia [Unknown]
  - Intentional product misuse [Unknown]
